FAERS Safety Report 14623737 (Version 1)
Quarter: 2018Q1

REPORT INFORMATION
  Report Type: Spontaneous
  Country: US (occurrence: US)
  Receive Date: 20180309
  Receipt Date: 20180309
  Transmission Date: 20180509
  Serious: Yes (Other)
  Sender: FDA-Public Use
  Company Number: None

PATIENT
  Age: 53 Year
  Sex: Female

DRUGS (5)
  1. PREDNISONE. [Concomitant]
     Active Substance: PREDNISONE
  2. ALEVE [Concomitant]
     Active Substance: NAPROXEN SODIUM
  3. CIMZIA [Suspect]
     Active Substance: CERTOLIZUMAB PEGOL
     Indication: RHEUMATOID ARTHRITIS
     Route: 058
     Dates: start: 20170808
  4. ARAVA [Concomitant]
     Active Substance: LEFLUNOMIDE
  5. ADVIL [Concomitant]
     Active Substance: IBUPROFEN

REACTIONS (2)
  - Condition aggravated [None]
  - Pain [None]

NARRATIVE: CASE EVENT DATE: 201802
